FAERS Safety Report 11745881 (Version 9)
Quarter: 2021Q2

REPORT INFORMATION
  Report Type: Spontaneous
  Country: US (occurrence: US)
  Receive Date: 20151117
  Receipt Date: 20210526
  Transmission Date: 20210716
  Serious: Yes (Other)
  Sender: FDA-Public Use
  Company Number: US-BAYER-2015-459293

PATIENT
  Age: 35 Year
  Sex: Female

DRUGS (11)
  1. SERTRALINE [Concomitant]
     Active Substance: SERTRALINE HYDROCHLORIDE
  2. GABAPENTIN. [Concomitant]
     Active Substance: GABAPENTIN
  3. OMEPRAZOLE. [Concomitant]
     Active Substance: OMEPRAZOLE
  4. ESSURE [Suspect]
     Active Substance: DEVICE
     Indication: FEMALE STERILISATION
     Dosage: UNK
     Dates: start: 20071228, end: 20180209
  5. DEPO?PROVERA [Concomitant]
     Active Substance: MEDROXYPROGESTERONE ACETATE
     Dosage: UNK
     Dates: start: 20160331
  6. IUD NOS [Suspect]
     Active Substance: COPPER OR LEVONORGESTREL
     Indication: CONTRACEPTION
     Dosage: UNK
     Route: 015
     Dates: start: 2011
  7. BUPIVACAINE. [Concomitant]
     Active Substance: BUPIVACAINE
  8. MIRENA [Suspect]
     Active Substance: LEVONORGESTREL
     Indication: CONTRACEPTION
     Dosage: 20 MCG/24HR, CONT
     Route: 015
     Dates: start: 2011, end: 2011
  9. PARAGARD T 380A [Concomitant]
     Active Substance: COPPER
  10. TRAZODONE [Concomitant]
     Active Substance: TRAZODONE HYDROCHLORIDE
  11. WARFARIN [Concomitant]
     Active Substance: WARFARIN

REACTIONS (28)
  - Pain in extremity [Unknown]
  - Stress urinary incontinence [Unknown]
  - Cystitis [Recovered/Resolved]
  - Uterine perforation [Unknown]
  - Mood swings [Not Recovered/Not Resolved]
  - Device dislocation [Unknown]
  - Dysmenorrhoea [Recovered/Resolved]
  - Hot flush [Not Recovered/Not Resolved]
  - Pregnancy with contraceptive device [Unknown]
  - Abdominal pain lower [Recovered/Resolved]
  - Heavy menstrual bleeding [Recovered/Resolved]
  - Vaginal discharge [Recovered/Resolved]
  - Pelvic pain [Unknown]
  - Genital haemorrhage [Recovered/Resolved]
  - Depression [Unknown]
  - Thrombosis [Unknown]
  - Vaginal haemorrhage [Recovered/Resolved]
  - Menstrual disorder [Unknown]
  - Vaginal infection [Recovered/Resolved]
  - Procedural pain [Unknown]
  - Headache [Not Recovered/Not Resolved]
  - Device ineffective [Unknown]
  - Urinary tract disorder [Recovered/Resolved]
  - Post procedural discomfort [Unknown]
  - Anxiety [Unknown]
  - Mental disorder [Unknown]
  - Bladder disorder [Recovered/Resolved]
  - Urinary tract infection [None]

NARRATIVE: CASE EVENT DATE: 20071228
